FAERS Safety Report 8043307-1 (Version None)
Quarter: 2012Q1

REPORT INFORMATION
  Report Type: 
  Country: None (occurrence: None)
  Receive Date: 20120112
  Receipt Date: 20120104
  Transmission Date: 20120608
  Serious: Yes (Other)
  Sender: FDA-Public Use
  Company Number: CA-GLAXOSMITHKLINE-A0960463A

PATIENT

DRUGS (1)
  1. VALTREX [Suspect]
     Indication: PRODUCT USED FOR UNKNOWN INDICATION
     Route: 065

REACTIONS (8)
  - MALAISE [None]
  - BALANCE DISORDER [None]
  - VOMITING [None]
  - ARTHRALGIA [None]
  - DIZZINESS [None]
  - BACK PAIN [None]
  - PNEUMONIA [None]
  - GASTRIC DISORDER [None]
